FAERS Safety Report 15453737 (Version 1)
Quarter: 2018Q4

REPORT INFORMATION
  Report Type: Spontaneous
  Country: US (occurrence: US)
  Receive Date: 20181001
  Receipt Date: 20181001
  Transmission Date: 20190204
  Serious: No
  Sender: FDA-Public Use
  Company Number: US-AVEDRO-AVE-2018-0141-AE

PATIENT
  Age: 63 Year
  Sex: Female

DRUGS (2)
  1. CONTACT LENS [Suspect]
     Active Substance: DEVICE
     Indication: VISUAL IMPAIRMENT
     Route: 047
  2. AVEDRO CROSS-LINKING PRODUCT(S), UNSPECIFIED (RIBOFLAVIN 5^-PHOSPHATE SODIUM) [Suspect]
     Active Substance: RIBOFLAVIN 5^-PHOSPHATE SODIUM
     Indication: KERATOCONUS
     Route: 047
     Dates: start: 201710, end: 201710

REACTIONS (4)
  - Discomfort [Recovered/Resolved]
  - Eye complication associated with device [Recovered/Resolved]
  - Eye pain [Recovered/Resolved]
  - Eye irritation [Recovered/Resolved]

NARRATIVE: CASE EVENT DATE: 201710
